FAERS Safety Report 19720755 (Version 1)
Quarter: 2021Q3

REPORT INFORMATION
  Report Type: Spontaneous
  Country: GB (occurrence: GB)
  Receive Date: 20210818
  Receipt Date: 20210818
  Transmission Date: 20211014
  Serious: Yes (Death, Other)
  Sender: FDA-Public Use
  Company Number: GB-GILEAD-2021-0544425

PATIENT
  Age: 50 Year
  Sex: Male

DRUGS (2)
  1. BIKTARVY [Suspect]
     Active Substance: BICTEGRAVIR SODIUM\EMTRICITABINE\TENOFOVIR ALAFENAMIDE FUMARATE
     Indication: HIV INFECTION
     Dosage: UNK
     Route: 065
     Dates: start: 20200602
  2. DORAVIRINE [Concomitant]
     Active Substance: DORAVIRINE
     Indication: HIV INFECTION
     Dosage: UNK
     Route: 065
     Dates: start: 20200602

REACTIONS (1)
  - Death [Fatal]

NARRATIVE: CASE EVENT DATE: 20210221
